FAERS Safety Report 4364987-8 (Version None)
Quarter: 2004Q2

REPORT INFORMATION
  Report Type: 
  Country: None (occurrence: None)
  Receive Date: 20040524
  Receipt Date: 20040524
  Transmission Date: 20050107
  Serious: Yes (Life-Threatening)
  Sender: FDA-Public Use
  Company Number: None

PATIENT
  Sex: Female
  Weight: 135.1719 kg

DRUGS (2)
  1. PENICILLIN [Suspect]
  2. ERYTHROMYCIN [Suspect]

REACTIONS (2)
  - OBSTRUCTIVE AIRWAYS DISORDER [None]
  - RASH [None]
